FAERS Safety Report 9849395 (Version 1)
Quarter: 2014Q1

REPORT INFORMATION
  Report Type: Spontaneous
  Country: GB (occurrence: None)
  Receive Date: 20140124
  Receipt Date: 20140124
  Transmission Date: 20141002
  Serious: Yes (Other)
  Sender: FDA-Public Use
  Company Number: GB-DEXPHARMA-20140006

PATIENT
  Age: 81 Year
  Sex: Male

DRUGS (3)
  1. OMEPRAZOLE [Suspect]
     Dates: start: 201205, end: 20140101
  2. ASPIRIN [Concomitant]
  3. MELOXICAM [Concomitant]

REACTIONS (11)
  - Drug hypersensitivity [None]
  - Decreased appetite [None]
  - Balance disorder [None]
  - Folliculitis [None]
  - Hearing impaired [None]
  - Rash [None]
  - Visual impairment [None]
  - Weight decreased [None]
  - Flea infestation [None]
  - Skin irritation [None]
  - Condition aggravated [None]
